FAERS Safety Report 24180467 (Version 5)
Quarter: 2025Q2

REPORT INFORMATION
  Report Type: Report from Study
  Country: AT (occurrence: AT)
  Receive Date: 20240806
  Receipt Date: 20250416
  Transmission Date: 20250716
  Serious: Yes (Hospitalization)
  Sender: DAIICHI
  Company Number: AT-DSJP-DSE-2024-138782

PATIENT
  Age: 81 Year
  Sex: Male
  Weight: 63 kg

DRUGS (4)
  1. ENHERTU [Suspect]
     Active Substance: FAM-TRASTUZUMAB DERUXTECAN-NXKI
     Indication: Oesophageal adenocarcinoma
     Route: 065
     Dates: start: 20240424, end: 20240424
  2. ENHERTU [Suspect]
     Active Substance: FAM-TRASTUZUMAB DERUXTECAN-NXKI
     Indication: HER2 positive gastric cancer
     Route: 065
     Dates: start: 20240701, end: 20240819
  3. ENHERTU [Suspect]
     Active Substance: FAM-TRASTUZUMAB DERUXTECAN-NXKI
     Indication: Adenocarcinoma gastric
  4. ZOFRAN [Concomitant]
     Active Substance: ONDANSETRON HYDROCHLORIDE
     Indication: Prophylaxis of nausea and vomiting
     Route: 048
     Dates: start: 20240515

REACTIONS (7)
  - Acute kidney injury [Recovered/Resolved]
  - Hypokalaemia [Not Recovered/Not Resolved]
  - Hypokalaemia [Not Recovered/Not Resolved]
  - Vomiting [Not Recovered/Not Resolved]
  - Fatigue [Not Recovered/Not Resolved]
  - Diarrhoea [Recovered/Resolved]
  - Vomiting [Recovered/Resolved]

NARRATIVE: CASE EVENT DATE: 20240515
